FAERS Safety Report 16344712 (Version 2)
Quarter: 2019Q2

REPORT INFORMATION
  Report Type: Spontaneous
  Country: FR (occurrence: FR)
  Receive Date: 20190522
  Receipt Date: 20190530
  Transmission Date: 20190711
  Serious: Yes (Other)
  Sender: FDA-Public Use
  Company Number: PHHY2016FR129275

PATIENT
  Age: 54 Year
  Sex: Female

DRUGS (2)
  1. VOLTARENPLAST 1% [Suspect]
     Active Substance: DICLOFENAC SODIUM
     Indication: PRODUCT USED FOR UNKNOWN INDICATION
     Dosage: UNK
     Route: 003
     Dates: start: 201511, end: 201511
  2. VOLTARENPLAST 1% [Suspect]
     Active Substance: DICLOFENAC SODIUM
     Dosage: UNK
     Route: 003

REACTIONS (4)
  - Asthma [Recovered/Resolved]
  - Cough [Recovered/Resolved]
  - Bronchospasm [Recovered/Resolved]
  - Chest discomfort [Recovered/Resolved]

NARRATIVE: CASE EVENT DATE: 201511
